FAERS Safety Report 6161649-1 (Version None)
Quarter: 2009Q2

REPORT INFORMATION
  Report Type: 
  Country: None (occurrence: None)
  Receive Date: 20090421
  Receipt Date: 20090409
  Transmission Date: 20091009
  Serious: Yes (Other)
  Sender: FDA-Public Use
  Company Number: GB-TEVA-191176ISR

PATIENT
  Age: 33 Year
  Sex: Male

DRUGS (2)
  1. CITALOPRAM HYDROBROMIDE [Suspect]
     Route: 048
  2. MIRTAZAPINE [Suspect]

REACTIONS (2)
  - AGGRESSION [None]
  - ALCOHOL INTERACTION [None]
